FAERS Safety Report 9080963 (Version 1)
Quarter: 2013Q1

REPORT INFORMATION
  Report Type: Report from Study
  Country: US (occurrence: US)
  Receive Date: 20130130
  Receipt Date: 20130130
  Transmission Date: 20140127
  Serious: No
  Sender: FDA-Public Use
  Company Number: US-ABBOTT-12P-163-0962245-00

PATIENT
  Age: 77 Year
  Sex: Female

DRUGS (7)
  1. HUMIRA 40 MG/ 0.8 ML PRE-FILLED SYRINGE [Suspect]
     Indication: PSORIASIS
     Dosage: LOADING DOSE
     Dates: start: 20120718, end: 20120718
  2. HUMIRA 40 MG/ 0.8 ML PRE-FILLED SYRINGE [Suspect]
     Dosage: LOADING DOES
     Dates: start: 20120725
  3. VYTORIN [Concomitant]
     Indication: BLOOD CHOLESTEROL INCREASED
     Dosage: 10/20MG 1 TABLET DAILY
  4. METFORMIN HCL [Concomitant]
     Indication: DIABETES MELLITUS
  5. GLIPIZIDE/METFORMIN [Concomitant]
     Indication: DIABETES MELLITUS
     Dosage: 2.5MG/500MG 1 TAB TWICE DAILY
  6. FENOFIBRATE [Concomitant]
     Indication: PRODUCT USED FOR UNKNOWN INDICATION
  7. ATENOLOL [Concomitant]
     Indication: HYPERTENSION

REACTIONS (3)
  - Injection site pain [Recovering/Resolving]
  - Injection site bruising [Recovering/Resolving]
  - Injection site pain [Recovered/Resolved]
